FAERS Safety Report 5518220-1 (Version None)
Quarter: 2007Q4

REPORT INFORMATION
  Report Type: 
  Country: None (occurrence: None)
  Receive Date: 20071115
  Receipt Date: 20071114
  Transmission Date: 20080405
  Serious: Yes (Other)
  Sender: FDA-Public Use
  Company Number: A0688856A

PATIENT
  Age: 31 Year
  Sex: Female
  Weight: 79.1 kg

DRUGS (1)
  1. ALLI [Suspect]
     Indication: WEIGHT LOSS DIET
     Route: 048
     Dates: start: 20070901

REACTIONS (10)
  - AMNESIA [None]
  - APATHY [None]
  - DIZZINESS [None]
  - DRUG INEFFECTIVE [None]
  - FOOD CRAVING [None]
  - FRUSTRATION [None]
  - LOSS OF CONSCIOUSNESS [None]
  - MALAISE [None]
  - WEIGHT FLUCTUATION [None]
  - WEIGHT INCREASED [None]
